FAERS Safety Report 19458952 (Version 1)
Quarter: 2021Q2

REPORT INFORMATION
  Report Type: Spontaneous
  Country: US (occurrence: US)
  Receive Date: 20210625
  Receipt Date: 20210625
  Transmission Date: 20210717
  Serious: Yes (Disabling)
  Sender: FDA-Public Use
  Company Number: None

PATIENT
  Age: 65 Year
  Sex: Male
  Weight: 76.95 kg

DRUGS (1)
  1. OLANZAPINE (GENERIC FOR ZYPREXA) [Suspect]
     Active Substance: OLANZAPINE
     Indication: SCHIZOPHRENIA
     Dosage: ?          QUANTITY:1 TABLET(S);?
     Route: 048

REACTIONS (5)
  - Palpitations [None]
  - Tardive dyskinesia [None]
  - Expired product administered [None]
  - Tremor [None]
  - Blood pressure fluctuation [None]

NARRATIVE: CASE EVENT DATE: 20210201
